FAERS Safety Report 17980003 (Version 1)
Quarter: 2020Q3

REPORT INFORMATION
  Report Type: Spontaneous
  Country: FR (occurrence: FR)
  Receive Date: 20200703
  Receipt Date: 20200703
  Transmission Date: 20201103
  Serious: Yes (Hospitalization)
  Sender: FDA-Public Use
  Company Number: FR-MYLANLABS-2020M1059798

PATIENT
  Age: 49 Year
  Sex: Male
  Weight: 70 kg

DRUGS (16)
  1. VANCOMYCIN [Suspect]
     Active Substance: VANCOMYCIN
     Indication: INFECTION
     Dosage: 2500 MILLIGRAM, QD
     Route: 041
     Dates: start: 20190425, end: 20190510
  2. METHOTREXATE. [Suspect]
     Active Substance: METHOTREXATE
     Indication: ACUTE MYELOID LEUKAEMIA
     Dosage: 15 MILLIGRAM, CYCLE
     Route: 037
     Dates: start: 20190425, end: 20190503
  3. CEFTAZIDIME. [Suspect]
     Active Substance: CEFTAZIDIME
     Indication: INFECTION
     Dosage: 6 GRAM, QD
     Route: 041
     Dates: start: 20190426, end: 20190513
  4. AMIKACIN. [Suspect]
     Active Substance: AMIKACIN
     Indication: INFECTION
     Dosage: 1 GRAM, QD
     Route: 041
     Dates: start: 20190425, end: 20190427
  5. ALPRAZOLAM. [Suspect]
     Active Substance: ALPRAZOLAM
     Indication: ANXIETY
     Dosage: 0.25 MILLIGRAM, QD
     Route: 048
     Dates: start: 20190423, end: 20190510
  6. RYDAPT [Suspect]
     Active Substance: MIDOSTAURIN
     Indication: ACUTE MYELOID LEUKAEMIA
     Dosage: 100 MILLIGRAM, QD
     Route: 048
     Dates: start: 20190502, end: 20190505
  7. METHYLPREDNISOLONE. [Suspect]
     Active Substance: METHYLPREDNISOLONE
     Indication: ACUTE MYELOID LEUKAEMIA
     Dosage: 40 MILLIGRAM, CYCLE
     Route: 037
     Dates: start: 20190425, end: 20190503
  8. CEFOTAXIME [Suspect]
     Active Substance: CEFOTAXIME SODIUM
     Indication: INFECTION
     Dosage: 6 GRAM, QD
     Route: 041
     Dates: start: 20190422, end: 20190425
  9. CYTARABINE. [Suspect]
     Active Substance: CYTARABINE
     Indication: ACUTE MYELOID LEUKAEMIA
     Dosage: 30 MILLIGRAM, CYCLE
     Route: 037
     Dates: start: 20190425, end: 20190503
  10. DAUNORUBICINE [Suspect]
     Active Substance: DAUNORUBICIN
     Indication: ACUTE MYELOID LEUKAEMIA
     Dosage: 480 MILLIGRAM, CYCLE
     Route: 041
     Dates: start: 20190425, end: 20190427
  11. ROVAMYCINE                         /00074404/ [Suspect]
     Active Substance: SPIRAMYCIN ADIPATE
     Indication: INFECTION
     Dosage: 3 DOSAGE FORM, QD
     Route: 041
     Dates: start: 20190430, end: 20190506
  12. ALLOPURINOL. [Suspect]
     Active Substance: ALLOPURINOL
     Indication: PROPHYLAXIS
     Dosage: 300 MILLIGRAM, QD
     Route: 048
     Dates: start: 20190419, end: 20190502
  13. AMBISOME [Suspect]
     Active Substance: AMPHOTERICIN B
     Indication: INFECTION
     Dosage: 200 MILLIGRAM, QD (POUDRE POUR SUSPENSION DE LIPOSOMES POUR PERFUSION)
     Route: 041
     Dates: start: 20190429, end: 20190520
  14. ACICLOVIR [Suspect]
     Active Substance: ACYCLOVIR
     Indication: INFECTION
     Dosage: 750 MILLIGRAM, QD
     Route: 041
     Dates: start: 20190429, end: 20190519
  15. HYDREA [Suspect]
     Active Substance: HYDROXYUREA
     Indication: ACUTE MYELOID LEUKAEMIA
     Dosage: 2 GRAM, QD
     Route: 048
     Dates: start: 20190419, end: 20190425
  16. CYTARABINE. [Suspect]
     Active Substance: CYTARABINE
     Dosage: 2520 MILLIGRAM, CYCLE
     Route: 041
     Dates: start: 20190425, end: 20190501

REACTIONS (1)
  - Posterior reversible encephalopathy syndrome [Recovered/Resolved with Sequelae]

NARRATIVE: CASE EVENT DATE: 20190506
